FAERS Safety Report 5535133-X (Version None)
Quarter: 2007Q4

REPORT INFORMATION
  Report Type: 
  Country: None (occurrence: None)
  Receive Date: 20071203
  Receipt Date: 20071107
  Transmission Date: 20080405
  Serious: Yes (Hospitalization)
  Sender: FDA-Public Use
  Company Number: 6010870

PATIENT
  Age: 56 Year
  Sex: Male

DRUGS (2)
  1. ZEBETA [Suspect]
     Indication: DRUG USE FOR UNKNOWN INDICATION
     Dosage: 2,5 MG (2,5 MG, 1 IN 1 D) ORAL
     Route: 048
  2. ATORVASTATIN CALCIUM [Concomitant]

REACTIONS (15)
  - ALDOLASE INCREASED [None]
  - ASPARTATE AMINOTRANSFERASE INCREASED [None]
  - ASTHENIA [None]
  - BLOOD CREATINE PHOSPHOKINASE INCREASED [None]
  - C-REACTIVE PROTEIN INCREASED [None]
  - DYSPHAGIA [None]
  - DYSSTASIA [None]
  - HAEMATOCRIT DECREASED [None]
  - HAEMOGLOBIN DECREASED [None]
  - MUSCLE NECROSIS [None]
  - MUSCULAR WEAKNESS [None]
  - MYOPATHY TOXIC [None]
  - PLATELET COUNT DECREASED [None]
  - QUADRIPARESIS [None]
  - RESPIRATORY RATE INCREASED [None]
